FAERS Safety Report 8974271 (Version 1)
Quarter: 2012Q4

REPORT INFORMATION
  Report Type: Spontaneous
  Country: US (occurrence: None)
  Receive Date: 20121217
  Receipt Date: 20121217
  Transmission Date: 20130627
  Serious: Yes (Other)
  Sender: FDA-Public Use
  Company Number: None

PATIENT
  Age: 9 Year
  Sex: Male
  Weight: 23.59 kg

DRUGS (1)
  1. DIVALPROEX [Suspect]
     Indication: INTRACTABLE EPILEPSY
     Route: 048
     Dates: start: 20120831, end: 20121011

REACTIONS (1)
  - Suicidal ideation [None]
